FAERS Safety Report 8689015 (Version 3)
Quarter: 2012Q4

REPORT INFORMATION
  Report Type: 
  Country: US (occurrence: US)
  Receive Date: 20120727
  Receipt Date: 20120911
  Transmission Date: 20130627
  Serious: No
  Sender: FDA-Public Use
  Company Number: US-ASTRAZENECA-2011SE76299

PATIENT
  Age: 50 Year
  Sex: Female

DRUGS (2)
  1. SEROQUEL XR [Suspect]
     Indication: BIPOLAR DISORDER
     Route: 048
  2. SEROQUEL XR [Suspect]
     Indication: BIPOLAR DISORDER
     Route: 048
     Dates: start: 2006

REACTIONS (7)
  - Tremor [Unknown]
  - Insomnia [Unknown]
  - Bipolar disorder [Unknown]
  - Emotional disorder [Unknown]
  - Stress [Unknown]
  - Intentional drug misuse [Unknown]
  - Drug dose omission [Unknown]
